FAERS Safety Report 4923687-3 (Version None)
Quarter: 2006Q1

REPORT INFORMATION
  Report Type: 
  Country: None (occurrence: None)
  Receive Date: 20060227
  Receipt Date: 20050426
  Transmission Date: 20060701
  Serious: Yes (Hospitalization, Other)
  Sender: FDA-Public Use
  Company Number: US-MERCK-0504USA04863

PATIENT
  Age: 71 Year
  Sex: Female
  Weight: 112 kg

DRUGS (1)
  1. VIOXX [Suspect]
     Indication: ARTHRITIS
     Route: 048
     Dates: start: 20020501, end: 20030401

REACTIONS (25)
  - ANAEMIA [None]
  - ASTHMA [None]
  - ATRIAL HYPERTROPHY [None]
  - BRADYCARDIA [None]
  - BREAST DISORDER [None]
  - CARDIAC FAILURE CONGESTIVE [None]
  - CARDIAC MURMUR [None]
  - CEREBROVASCULAR ACCIDENT [None]
  - CHEST PAIN [None]
  - CONVULSION [None]
  - DYSPHAGIA [None]
  - DYSPNOEA [None]
  - GOUT [None]
  - HYPOACUSIS [None]
  - LUNG NEOPLASM [None]
  - MITRAL VALVE INCOMPETENCE [None]
  - NASOPHARYNGITIS [None]
  - NEUROPATHY [None]
  - NODAL RHYTHM [None]
  - OSTEOARTHRITIS [None]
  - PARALYSIS [None]
  - PULMONARY HYPERTENSION [None]
  - TRICUSPID VALVE INCOMPETENCE [None]
  - URINARY INCONTINENCE [None]
  - VENTRICULAR HYPERTROPHY [None]
